FAERS Safety Report 5463950-3 (Version None)
Quarter: 2007Q3

REPORT INFORMATION
  Report Type: 
  Country: None (occurrence: None)
  Receive Date: 20070921
  Receipt Date: 20070913
  Transmission Date: 20080115
  Serious: Yes (Hospitalization, Other)
  Sender: FDA-Public Use
  Company Number: PHBS2007BR15135

PATIENT
  Age: 54 Year
  Sex: Female
  Weight: 60 kg

DRUGS (5)
  1. TRILEPTAL [Suspect]
     Indication: BIPOLAR DISORDER
     Dosage: 600 MG/DAY (2 TABLETS/DAY)
     Route: 048
     Dates: start: 20070901, end: 20070910
  2. RISPERIDONE [Concomitant]
  3. CAPTOPRIL [Concomitant]
  4. PROPRANOLOL [Concomitant]
  5. ATENSINE [Concomitant]

REACTIONS (5)
  - CONFUSIONAL STATE [None]
  - HYPONATRAEMIA [None]
  - INAPPROPRIATE ANTIDIURETIC HORMONE SECRETION [None]
  - MENTAL DISORDER [None]
  - PROSTRATION [None]
